FAERS Safety Report 8224583-9 (Version None)
Quarter: 2012Q1

REPORT INFORMATION
  Report Type: 
  Country: None (occurrence: None)
  Receive Date: 20120321
  Receipt Date: 20120309
  Transmission Date: 20120608
  Serious: Yes (Other)
  Sender: FDA-Public Use
  Company Number: US-ELI_LILLY_AND_COMPANY-US201203003232

PATIENT
  Sex: Female
  Weight: 90.703 kg

DRUGS (10)
  1. PROZAC [Suspect]
     Indication: DEPRESSION
     Dosage: 20 MG, UNK
  2. METHADONE HCL [Concomitant]
     Indication: FIBROMYALGIA
     Dosage: 80 MG, QD
     Route: 048
     Dates: start: 20030101
  3. NAPROXEN (ALEVE) [Concomitant]
     Dosage: UNK
     Route: 048
  4. LISINOPRIL AND HYDROCHLOROTHIAZIDE [Concomitant]
     Indication: BLOOD PRESSURE ABNORMAL
     Dosage: 1 DF, QD
     Route: 048
  5. OXYCODONE HCL [Concomitant]
     Indication: FIBROMYALGIA
     Dosage: UNK
  6. NEURONTIN [Concomitant]
     Indication: FIBROMYALGIA
     Dosage: UNK
  7. METHADONE HCL [Concomitant]
     Dosage: 0.5 DF, EACH MORNING
     Route: 048
  8. METHADONE HCL [Concomitant]
     Dosage: 20 MG, OTHER
     Route: 048
  9. PROZAC [Suspect]
     Dosage: 40 MG, UNK
  10. METHADONE HCL [Concomitant]
     Dosage: 40 MG, QD
     Route: 048

REACTIONS (7)
  - POLYP [None]
  - ABDOMINAL DISCOMFORT [None]
  - MALAISE [None]
  - PRECANCEROUS MUCOSAL LESION [None]
  - ARTHRALGIA [None]
  - BIPOLAR DISORDER [None]
  - DRUG INEFFECTIVE [None]
